FAERS Safety Report 9325175 (Version 1)
Quarter: 2013Q2

REPORT INFORMATION
  Report Type: Report from Study
  Country: NL (occurrence: NL)
  Receive Date: 20130604
  Receipt Date: 20130604
  Transmission Date: 20140414
  Serious: Yes (Death)
  Sender: FDA-Public Use
  Company Number: NL-TEVA-409123ISR

PATIENT
  Age: 75 Year
  Sex: Female

DRUGS (3)
  1. MYOCET [Suspect]
  2. PACLITAXEL [Suspect]
     Indication: BREAST CANCER METASTATIC
     Dosage: 150 MILLIGRAM DAILY;
     Route: 042
     Dates: start: 20110415, end: 20111111
  3. BEVACIZUMAB [Suspect]
     Indication: BREAST CANCER METASTATIC
     Dosage: 930 MILLIGRAM DAILY;
     Route: 042
     Dates: start: 20110415, end: 20111216

REACTIONS (1)
  - Cerebral haemorrhage [Fatal]
